FAERS Safety Report 17452618 (Version 2)
Quarter: 2020Q2

REPORT INFORMATION
  Report Type: Report from Study
  Country: CO (occurrence: CO)
  Receive Date: 20200224
  Receipt Date: 20200522
  Transmission Date: 20200713
  Serious: Yes (Hospitalization)
  Sender: FDA-Public Use
  Company Number: CO-TAKEDA-2020TUS010705

PATIENT
  Age: 18 Year
  Sex: Male
  Weight: 45 kg

DRUGS (1)
  1. VEDOLIZUMAB [Suspect]
     Active Substance: VEDOLIZUMAB
     Indication: CROHN^S DISEASE
     Dosage: 300 MILLIGRAM
     Route: 042
     Dates: start: 20190812

REACTIONS (7)
  - Haematuria [Recovered/Resolved]
  - Abdominal distension [Unknown]
  - Back pain [Recovered/Resolved]
  - Constipation [Unknown]
  - Abdominal pain [Recovered/Resolved]
  - Haematochezia [Unknown]
  - Dyschezia [Unknown]

NARRATIVE: CASE EVENT DATE: 20200205
